FAERS Safety Report 13393762 (Version 1)
Quarter: 2017Q1

REPORT INFORMATION
  Report Type: Spontaneous
  Country: IT (occurrence: IT)
  Receive Date: 20170331
  Receipt Date: 20170331
  Transmission Date: 20170429
  Serious: Yes (Hospitalization, Other)
  Sender: FDA-Public Use
  Company Number: IT-BRISTOL-MYERS SQUIBB COMPANY-BMS-2017-026097

PATIENT
  Age: 80 Year
  Sex: Male

DRUGS (1)
  1. ELIQUIS [Suspect]
     Active Substance: APIXABAN
     Indication: CEREBROVASCULAR ACCIDENT PROPHYLAXIS
     Dosage: 5 MG, BID
     Route: 048

REACTIONS (6)
  - Pulmonary infarction [Unknown]
  - Limb injury [Unknown]
  - Ecchymosis [Unknown]
  - Cerebral haemorrhage [Unknown]
  - Pulmonary embolism [Unknown]
  - Haematoma [Unknown]

NARRATIVE: CASE EVENT DATE: 20170102
